FAERS Safety Report 18600249 (Version 1)
Quarter: 2020Q4

REPORT INFORMATION
  Report Type: Spontaneous
  Country: US (occurrence: US)
  Receive Date: 20201210
  Receipt Date: 20201210
  Transmission Date: 20210114
  Serious: No
  Sender: FDA-Public Use
  Company Number: None

PATIENT
  Age: 35 Year
  Sex: Male
  Weight: 66.6 kg

DRUGS (6)
  1. LEVOCETIRIZINE 5 MG [Concomitant]
     Active Substance: LEVOCETIRIZINE
     Dates: start: 20191024
  2. LISINOPRIL 10 MG [Concomitant]
     Active Substance: LISINOPRIL
     Dates: start: 20191024
  3. RANITIDINE. [Concomitant]
     Active Substance: RANITIDINE
     Dates: start: 20191024
  4. SERTRALINE [Suspect]
     Active Substance: SERTRALINE HYDROCHLORIDE
     Indication: EJACULATION DISORDER
     Dates: start: 20191014, end: 20200316
  5. PANTOPRAZOLE 40MG [Concomitant]
     Active Substance: PANTOPRAZOLE SODIUM
     Dates: start: 20191024
  6. MONTELUKAST 10 MG [Concomitant]
     Active Substance: MONTELUKAST SODIUM
     Dates: start: 20191024

REACTIONS (7)
  - Nausea [None]
  - Palpitations [None]
  - Anxiety [None]
  - Thinking abnormal [None]
  - Dizziness [None]
  - Tremor [None]
  - Impatience [None]

NARRATIVE: CASE EVENT DATE: 20200316
